FAERS Safety Report 16193198 (Version 1)
Quarter: 2019Q2

REPORT INFORMATION
  Report Type: Other
  Country: US (occurrence: US)
  Receive Date: 20190413
  Receipt Date: 20190413
  Transmission Date: 20190711
  Serious: Yes (Life-Threatening, Hospitalization, Other)
  Sender: FDA-Public Use
  Company Number: US-ACI HEALTHCARE LIMITED-2065770

PATIENT
  Age: 49 Year
  Sex: Female
  Weight: 82.09 kg

DRUGS (4)
  1. GABAPENTIN. [Suspect]
     Active Substance: GABAPENTIN
     Indication: FIBROMYALGIA
     Route: 048
     Dates: start: 2013, end: 20181227
  2. AMBIEN [Concomitant]
     Active Substance: ZOLPIDEM TARTRATE
     Route: 048
     Dates: start: 2009
  3. XANAX [Concomitant]
     Active Substance: ALPRAZOLAM
     Route: 048
     Dates: start: 2009
  4. VALIUM [Concomitant]
     Active Substance: DIAZEPAM
     Dates: start: 2018

REACTIONS (11)
  - Pneumonia [Unknown]
  - Influenza [Unknown]
  - Loss of consciousness [Recovered/Resolved]
  - Nervousness [Unknown]
  - Malaise [Unknown]
  - Intervertebral disc disorder [Recovered/Resolved]
  - Off label use [Recovered/Resolved]
  - Lisfranc fracture [Unknown]
  - Pulmonary oedema [Unknown]
  - Renal failure [Unknown]
  - Rheumatoid arthritis [Unknown]

NARRATIVE: CASE EVENT DATE: 2013
